FAERS Safety Report 4278880-2 (Version None)
Quarter: 2004Q1

REPORT INFORMATION
  Report Type: 
  Country: None (occurrence: None)
  Receive Date: 20040122
  Receipt Date: 20040105
  Transmission Date: 20041129
  Serious: Yes (Death)
  Sender: FDA-Public Use
  Company Number: 8004293

PATIENT
  Age: 39 Year
  Sex: Male

DRUGS (5)
  1. KEPPRA [Suspect]
     Dosage: 250 MG/ D PO
     Route: 048
     Dates: start: 20021001
  2. KEPPRA [Suspect]
     Dosage: 5000 MG./D PO
     Route: 048
  3. KEPPRA [Suspect]
     Dosage: 4000 MG/D PO
     Route: 048
     Dates: end: 20030921
  4. TRILEPTAL [Concomitant]
  5. GABITRIL [Concomitant]

REACTIONS (3)
  - ANTICONVULSANT DRUG LEVEL BELOW THERAPEUTIC [None]
  - COMPLEX PARTIAL SEIZURES [None]
  - SUDDEN DEATH [None]
